FAERS Safety Report 19082819 (Version 5)
Quarter: 2024Q1

REPORT INFORMATION
  Report Type: Other
  Country: SA (occurrence: None)
  Receive Date: 20210401
  Receipt Date: 20240219
  Transmission Date: 20240410
  Serious: Yes (Hospitalization, Other)
  Sender: FDA-Public Use
  Company Number: SA-ROCHE-2797800

PATIENT

DRUGS (12)
  1. OSELTAMIVIR [Suspect]
     Active Substance: OSELTAMIVIR
     Indication: COVID-19
     Route: 065
  2. TOCILIZUMAB [Suspect]
     Active Substance: TOCILIZUMAB
     Indication: COVID-19
     Route: 065
  3. TOCILIZUMAB [Suspect]
     Active Substance: TOCILIZUMAB
     Indication: COVID-19
     Dosage: SINGLE 4-8 MG/KG USING ACTUAL BODYWEIGHT (MAXIMUM 800 MG)
     Route: 042
  4. AZITHROMYCIN [Suspect]
     Active Substance: AZITHROMYCIN
     Indication: COVID-19
     Route: 065
  5. ASCORBIC ACID [Suspect]
     Active Substance: ASCORBIC ACID
     Indication: COVID-19
     Route: 065
  6. ZINC [Suspect]
     Active Substance: PYRITHIONE ZINC\ZINC\ZINC CHLORIDE
     Indication: COVID-19
     Route: 065
  7. ASPIRIN [Suspect]
     Active Substance: ASPIRIN
     Indication: COVID-19
     Route: 065
  8. THIAMINE [Suspect]
     Active Substance: THIAMINE
     Indication: COVID-19
     Route: 065
  9. HYDROXYCHLOROQUINE [Suspect]
     Active Substance: HYDROXYCHLOROQUINE
     Indication: COVID-19
     Route: 065
  10. LOPINAVIR [Suspect]
     Active Substance: LOPINAVIR
     Indication: COVID-19
     Route: 065
  11. FAVIPIRAVIR [Suspect]
     Active Substance: FAVIPIRAVIR
     Indication: COVID-19
     Route: 065
  12. RITONAVIR [Suspect]
     Active Substance: RITONAVIR
     Indication: COVID-19
     Route: 065

REACTIONS (18)
  - Respiratory failure [Unknown]
  - Acute kidney injury [Unknown]
  - Thrombosis [Unknown]
  - Liver injury [Unknown]
  - Disseminated intravascular coagulation [Unknown]
  - Acute respiratory distress syndrome [Unknown]
  - Bacteraemia [Unknown]
  - Pneumonia [Unknown]
  - Pseudomonas infection [Unknown]
  - Acinetobacter infection [Unknown]
  - Pneumonia klebsiella [Unknown]
  - Off label use [Unknown]
  - Fungal infection [Unknown]
  - Urinary tract infection [Unknown]
  - Enterobacter infection [Unknown]
  - Bacterial infection [Unknown]
  - Fungal infection [Unknown]
  - Infection [Unknown]
